FAERS Safety Report 4576066-5 (Version None)
Quarter: 2005Q1

REPORT INFORMATION
  Report Type: 
  Country: None (occurrence: None)
  Receive Date: 20050204
  Receipt Date: 20050127
  Transmission Date: 20050727
  Serious: Yes (Congenital Anomaly)
  Sender: FDA-Public Use
  Company Number: 2004097801

PATIENT
  Sex: Male
  Weight: 3.37 kg

DRUGS (6)
  1. VIRACEPT [Suspect]
     Indication: HIV TEST POSITIVE
     Dosage: 2500 MG (1 IN 1 D), ORAL
     Route: 048
     Dates: start: 20040130, end: 20040601
  2. ZIDOVUDINE W/LAMIVUDINE (LAMIVUDINE, ZIDOVUDINE) [Suspect]
     Indication: HIV TEST POSITIVE
     Dosage: 600 MG ( 1 IN 1 D), ORAL
     Route: 048
     Dates: start: 20040130, end: 20040601
  3. KALETRA [Suspect]
     Indication: HIV TEST POSITIVE
     Dosage: 600 MG (1 IN 1 D), ORAL
     Route: 048
     Dates: start: 20040601
  4. ZIDOVUDINE (ZIDOVIDINE) [Suspect]
     Indication: HIV TEST POSITIVE
     Dosage: 600 MG (1 IN 1 D), ORAL
     Route: 048
     Dates: start: 20040601, end: 20040720
  5. TENOFOVIR DISOPROXIL FUMARATE (TENOFOVIR DISPROXIL FUMARATE) [Suspect]
     Indication: HIV TEST POSITIVE
     Dosage: 50 MG (1 IN 1 D), ORAL
     Route: 048
     Dates: start: 20040601, end: 20040720
  6. FOLIC ACID [Concomitant]

REACTIONS (6)
  - ABDOMINAL DISTENSION [None]
  - ABDOMINAL HERNIA [None]
  - CARDIAC MURMUR [None]
  - CONGENITAL ANOMALY [None]
  - CRYPTORCHISM [None]
  - DRUG EXPOSURE DURING PREGNANCY [None]
